FAERS Safety Report 8465568-7 (Version None)
Quarter: 2012Q2

REPORT INFORMATION
  Report Type: 
  Country: None (occurrence: None)
  Receive Date: 20120619
  Receipt Date: 20120612
  Transmission Date: 20120825
  Serious: Yes (Hospitalization)
  Sender: FDA-Public Use
  Company Number: 2012060069

PATIENT
  Age: 53 Year
  Sex: Female

DRUGS (1)
  1. ZOLPIDEM [Suspect]
     Indication: INSOMNIA
     Dosage: (10 MG,AT BEDTIME) ; (30 MG,DAILY IN DIVIDED DOSES) ; 100 TO 160 MG (DAILY

REACTIONS (8)
  - PALPITATIONS [None]
  - ANXIETY [None]
  - DRUG DEPENDENCE [None]
  - OFF LABEL USE [None]
  - INSOMNIA [None]
  - IRRITABILITY [None]
  - WITHDRAWAL SYNDROME [None]
  - TREMOR [None]
